FAERS Safety Report 17669267 (Version 4)
Quarter: 2021Q4

REPORT INFORMATION
  Report Type: Report from Study
  Country: US (occurrence: US)
  Receive Date: 20200415
  Receipt Date: 20211005
  Transmission Date: 20220303
  Serious: No
  Sender: FDA-Public Use
  Company Number: NVSC2020US100067

PATIENT
  Sex: Male

DRUGS (1)
  1. COSENTYX [Suspect]
     Active Substance: SECUKINUMAB
     Indication: Psoriasis
     Dosage: 150 MG, QMO
     Route: 042
     Dates: start: 20180101, end: 20200401

REACTIONS (4)
  - No adverse event [Not Recovered/Not Resolved]
  - Impaired healing [Unknown]
  - Intentional dose omission [Unknown]
  - Incorrect route of product administration [Unknown]
